FAERS Safety Report 21150295 (Version 1)
Quarter: 2022Q3

REPORT INFORMATION
  Report Type: Spontaneous
  Country: US (occurrence: US)
  Receive Date: 20220729
  Receipt Date: 20220729
  Transmission Date: 20221027
  Serious: No
  Sender: FDA-Public Use
  Company Number: US-NOVOPROD-906784

PATIENT
  Sex: Female

DRUGS (3)
  1. OZEMPIC [Suspect]
     Active Substance: SEMAGLUTIDE
     Indication: Weight control
     Dosage: UNK
     Route: 058
  2. METOPROLOL [Concomitant]
     Active Substance: METOPROLOL
     Indication: Aortic dissection rupture
     Dosage: UNK
     Route: 065
     Dates: start: 2018
  3. BUSPIRONE [Concomitant]
     Active Substance: BUSPIRONE HYDROCHLORIDE
     Indication: Product used for unknown indication
     Dosage: 7.5 MG
     Route: 065
     Dates: start: 2018

REACTIONS (6)
  - Joint stiffness [Not Recovered/Not Resolved]
  - Arthritis [Not Recovered/Not Resolved]
  - Neuropathy peripheral [Not Recovered/Not Resolved]
  - Blood glucose increased [Not Recovered/Not Resolved]
  - Heart rate increased [Not Recovered/Not Resolved]
  - Off label use [Unknown]
